FAERS Safety Report 4349509-X (Version None)
Quarter: 2004Q1

REPORT INFORMATION
  Report Type: 
  Country: None (occurrence: None)
  Receive Date: 20040325
  Receipt Date: 20040202
  Transmission Date: 20041129
  Serious: No
  Sender: FDA-Public Use
  Company Number: USA031051028

PATIENT
  Age: 49 Year
  Sex: Female

DRUGS (12)
  1. FORTEO [Suspect]
     Indication: OSTEOPOROSIS
     Dosage: 20 UG/1 DAY
     Dates: start: 20031021, end: 20031025
  2. CALCIUM [Concomitant]
  3. COUMADIN [Concomitant]
  4. DURAGESIC [Concomitant]
  5. MONOPRIL [Concomitant]
  6. NEURONTIN [Concomitant]
  7. OXYCODONE [Concomitant]
  8. PROMETHAZINE [Concomitant]
  9. REGLAN [Concomitant]
  10. UNITHROID (LEVOTHYROXINE SODIUM) [Concomitant]
  11. VIOXX [Concomitant]
  12. WELLBUTRIN [Concomitant]

REACTIONS (2)
  - BLOOD CALCIUM INCREASED [None]
  - NAUSEA [None]
